FAERS Safety Report 8451674 (Version 3)
Quarter: 2012Q4

REPORT INFORMATION
  Report Type: 
  Country: US (occurrence: US)
  Receive Date: 20120309
  Receipt Date: 20120919
  Transmission Date: 20130627
  Serious: Yes (Death)
  Sender: FDA-Public Use
  Company Number: US-BAYER-2012-021752

PATIENT
  Age: 32 Year
  Sex: Female

DRUGS (7)
  1. YASMIN [Suspect]
     Indication: MENSTRUAL CYCLE MANAGEMENT
     Dosage: UNK
     Dates: start: 200406, end: 201006
  2. YASMIN [Suspect]
     Indication: OVARIAN CYST
  3. OCELLA [Suspect]
     Dosage: UNK
     Dates: start: 200406, end: 201006
  4. ATIVAN [Concomitant]
     Dosage: 0.5 mg, every 8 hours as needed
  5. LEXAPRO [Concomitant]
     Indication: DEPRESSION
     Dosage: 10 mg, every morning
     Dates: end: 20100414
  6. LEXAPRO [Concomitant]
     Indication: ANXIETY
  7. WELLBUTRIN SR [Concomitant]
     Dosage: 150 mg, daily
     Dates: start: 20100414

REACTIONS (7)
  - Pulmonary embolism [Fatal]
  - Deep vein thrombosis [Fatal]
  - Anxiety [None]
  - Injury [Fatal]
  - Pain [Fatal]
  - Pain [None]
  - Loss of consciousness [Fatal]
